FAERS Safety Report 10041056 (Version 2)
Quarter: 2014Q2

REPORT INFORMATION
  Report Type: Spontaneous
  Country: US (occurrence: US)
  Receive Date: 20140327
  Receipt Date: 20140609
  Transmission Date: 20141212
  Serious: Yes (Hospitalization, Other)
  Sender: FDA-Public Use
  Company Number: US-BAYER-2014-045663

PATIENT
  Age: 16 Year
  Sex: Female
  Weight: 90.7 kg

DRUGS (15)
  1. MIRENA [Suspect]
     Indication: DYSMENORRHOEA
     Dosage: 20 MCG/24HR, CONT
     Route: 015
     Dates: start: 20111013, end: 20120202
  2. MIRENA [Suspect]
     Indication: MENORRHAGIA
  3. MIRENA [Suspect]
     Indication: PELVIC PAIN
  4. MIRENA [Suspect]
     Indication: CONTRACEPTION
  5. NORCO [Concomitant]
     Indication: PAIN
     Dosage: UNK
     Dates: start: 2010
  6. ADDERALL [Concomitant]
     Dosage: UNK
     Dates: start: 20120202
  7. BUSPAR [Concomitant]
     Dosage: UNK
     Dates: start: 20120202
  8. SEROQUEL [Concomitant]
     Dosage: UNK
     Dates: start: 20120202
  9. AMOXICILLIN [Concomitant]
  10. MACROBID [Concomitant]
  11. PRILOSEC [Concomitant]
     Dosage: UNK
  12. ZITHROMAX [Concomitant]
     Indication: VAGINAL INFECTION
  13. ZITHROMAX [Concomitant]
     Indication: UTERINE INFECTION
  14. LORTAB [Concomitant]
  15. DILAUDID [Concomitant]

REACTIONS (13)
  - Embedded device [None]
  - Genital haemorrhage [None]
  - Infection [None]
  - Dyspareunia [None]
  - Injury [None]
  - Pain [None]
  - Emotional distress [None]
  - Mental disorder [None]
  - Depression [None]
  - Generalised anxiety disorder [None]
  - Panic disorder [None]
  - Post-traumatic stress disorder [None]
  - Social phobia [None]
